FAERS Safety Report 6845725-3 (Version None)
Quarter: 2010Q3

REPORT INFORMATION
  Report Type: 
  Country: None (occurrence: None)
  Receive Date: 20100715
  Receipt Date: 20100102
  Transmission Date: 20110219
  Serious: No
  Sender: FDA-Public Use
  Company Number: US-PFIZER INC-2007069800

PATIENT
  Sex: Female
  Weight: 71.7 kg

DRUGS (2)
  1. CHANTIX [Suspect]
     Indication: SMOKING CESSATION THERAPY
     Dates: start: 20070809, end: 20070815
  2. AMLODIPINE [Concomitant]
     Indication: BLOOD PRESSURE ABNORMAL

REACTIONS (4)
  - DEPRESSION [None]
  - DRUG HYPERSENSITIVITY [None]
  - FLAT AFFECT [None]
  - VERTIGO [None]
